FAERS Safety Report 5684231-9 (Version None)
Quarter: 2008Q1

REPORT INFORMATION
  Report Type: 
  Country: None (occurrence: None)
  Receive Date: 20080328
  Receipt Date: 20071208
  Transmission Date: 20080703
  Serious: No
  Sender: FDA-Public Use
  Company Number: US-AMGEN-KDL251573

PATIENT
  Sex: Female
  Weight: 76.3 kg

DRUGS (6)
  1. NEULASTA [Suspect]
     Indication: CHEMOTHERAPY
     Route: 058
     Dates: start: 20071107
  2. ALLEGRA [Concomitant]
  3. VITAMIN CAP [Concomitant]
  4. TAXOTERE [Concomitant]
     Dates: start: 20071105, end: 20071105
  5. ADRIAMYCIN PFS [Concomitant]
     Dates: start: 20071105, end: 20071105
  6. CYTOXAN [Concomitant]
     Dates: start: 20071105, end: 20071105

REACTIONS (3)
  - ABDOMINAL DISCOMFORT [None]
  - ANXIETY [None]
  - DIARRHOEA [None]
